FAERS Safety Report 20495261 (Version 3)
Quarter: 2024Q1

REPORT INFORMATION
  Report Type: Spontaneous
  Country: US (occurrence: US)
  Receive Date: 20220221
  Receipt Date: 20240103
  Transmission Date: 20240410
  Serious: Yes (Other)
  Sender: FDA-Public Use
  Company Number: US-PFIZER INC-2019551553

PATIENT
  Age: 71 Year
  Sex: Female

DRUGS (11)
  1. IBRANCE [Suspect]
     Active Substance: PALBOCICLIB
     Indication: Breast cancer female
     Dosage: UNK
  2. IBRANCE [Suspect]
     Active Substance: PALBOCICLIB
     Dosage: UNK
     Dates: start: 201810
  3. IBRANCE [Suspect]
     Active Substance: PALBOCICLIB
     Dosage: 100 MG, CYCLIC (CYCLE #2 TO 100 MG PO, 3 WEEKS ON/1 WEEK OFF)
     Route: 048
  4. IBRANCE [Suspect]
     Active Substance: PALBOCICLIB
     Dosage: 75 MG, CYCLIC (3 WEEKS ON/ 1 WEEK OFF BEGINNING WITH CYCLE #3)
     Route: 048
  5. IBRANCE [Suspect]
     Active Substance: PALBOCICLIB
     Dosage: 75 MG, (IBRANCE 75 MG PL)
     Dates: start: 20210715
  6. IBRANCE [Suspect]
     Active Substance: PALBOCICLIB
     Dosage: TAKE 75 MG BY MOUTH 1 (ONE) TIME EACH DAY
     Route: 048
  7. FASLODEX [Concomitant]
     Active Substance: FULVESTRANT
     Dosage: UNK
     Dates: start: 20210715
  8. VERZENIO [Concomitant]
     Active Substance: ABEMACICLIB
     Indication: Cytopenia
     Dosage: UNK
     Dates: start: 20211104
  9. VERZENIO [Concomitant]
     Active Substance: ABEMACICLIB
     Indication: Impaired healing
     Dosage: 100 MG, 2X/DAY,(DOSE REDUCTION 100 MG PO BID)
     Route: 048
  10. ARIMIDEX [Concomitant]
     Active Substance: ANASTROZOLE
     Dosage: UNK
     Dates: start: 201810
  11. ARIMIDEX [Concomitant]
     Active Substance: ANASTROZOLE
     Dosage: UNK
     Dates: start: 20210422

REACTIONS (4)
  - Cytopenia [Unknown]
  - Neoplasm progression [Unknown]
  - Impaired healing [Unknown]
  - Gastrointestinal disorder [Unknown]
